FAERS Safety Report 6860751-6 (Version None)
Quarter: 2010Q3

REPORT INFORMATION
  Report Type: 
  Country: None (occurrence: None)
  Receive Date: 20100720
  Receipt Date: 20100719
  Transmission Date: 20110219
  Serious: Yes (Other)
  Sender: FDA-Public Use
  Company Number: GXKR2010DE07897

PATIENT
  Age: 79 Year
  Sex: Female

DRUGS (9)
  1. OMEPRAZOL (NGX) [Suspect]
     Indication: EXTRANODAL MARGINAL ZONE B-CELL LYMPHOMA (MALT TYPE)
     Dosage: 40 MG, QD
     Route: 048
     Dates: start: 20050101
  2. METOPROLOL SUCCINATE [Suspect]
     Indication: CORONARY ARTERY DISEASE
     Dosage: 47.5 MG, BID
     Route: 048
     Dates: start: 20090301
  3. SIMVASTATIN [Suspect]
     Indication: CORONARY ARTERY DISEASE
     Dosage: 20 MG, QD
     Route: 048
     Dates: start: 20090901
  4. METFORMIN HCL [Concomitant]
     Dosage: 2.5 DF, QD
  5. GLIMEPIRIDE [Concomitant]
     Dosage: 1.5 DF, QD
  6. ACETYLSALICYLIC ACID [Concomitant]
     Dosage: 100 MG, QD
  7. HYDROCHLOROTHIAZIDE [Concomitant]
  8. CORIFEO [Concomitant]
  9. RAMIPRIL [Concomitant]

REACTIONS (1)
  - PATHOLOGICAL FRACTURE [None]
